FAERS Safety Report 4628446-7 (Version None)
Quarter: 2005Q2

REPORT INFORMATION
  Report Type: 
  Country: None (occurrence: None)
  Receive Date: 20050404
  Receipt Date: 20050321
  Transmission Date: 20051028
  Serious: Yes (Hospitalization)
  Sender: FDA-Public Use
  Company Number: 2005030504

PATIENT
  Age: 17 Year
  Sex: Female
  Weight: 63.5036 kg

DRUGS (2)
  1. GEODON [Suspect]
     Indication: BIPOLAR DISORDER
     Dosage: 120 MG (20 MG, 6 IN 1 D), ORAL
     Route: 048
     Dates: start: 20041223
  2. TRIMSPA (ENZYMES NOS, HERBAL NOS, MINERALS NOS, VITAMINS NOS) [Concomitant]

REACTIONS (9)
  - ANXIETY [None]
  - ARTHRALGIA [None]
  - CRYING [None]
  - DEPRESSION [None]
  - DISTURBANCE IN ATTENTION [None]
  - INSOMNIA [None]
  - PAIN IN EXTREMITY [None]
  - RESTLESSNESS [None]
  - SEDATION [None]
